FAERS Safety Report 16916477 (Version 1)
Quarter: 2019Q4

REPORT INFORMATION
  Report Type: Spontaneous
  Country: JP (occurrence: BO)
  Receive Date: 20191014
  Receipt Date: 20191014
  Transmission Date: 20200122
  Serious: Yes (Hospitalization, Other)
  Sender: FDA-Public Use
  Company Number: BO-EX USA HOLDINGS-EXHL20192404

PATIENT
  Age: 10 Year
  Sex: Female

DRUGS (1)
  1. BENZNIDAZOLE. [Suspect]
     Active Substance: BENZNIDAZOLE
     Indication: AMERICAN TRYPANOSOMIASIS
     Dosage: 5 MG/KG
     Route: 048

REACTIONS (7)
  - Rash [Unknown]
  - Vomiting [Unknown]
  - Rash erythematous [Unknown]
  - Stevens-Johnson syndrome [Unknown]
  - Abdominal pain [Unknown]
  - Hepatosplenomegaly [Unknown]
  - Gallbladder oedema [Unknown]
